FAERS Safety Report 17964936 (Version 1)
Quarter: 2020Q2

REPORT INFORMATION
  Report Type: Report from Study
  Country: None (occurrence: IT)
  Receive Date: 20200630
  Receipt Date: 20200630
  Transmission Date: 20200714
  Serious: Yes (Hospitalization)
  Sender: FDA-Public Use
  Company Number: IT-ABBVIE-20K-083-3465971-00

PATIENT
  Age: 74 Year
  Sex: Male

DRUGS (1)
  1. DUODOPA [Suspect]
     Active Substance: CARBIDOPA\LEVODOPA
     Indication: PARKINSON^S DISEASE
     Dosage: MD: 7+3??CR: 4,2??ED: 3,5
     Route: 050
     Dates: start: 20150407

REACTIONS (3)
  - Road traffic accident [Unknown]
  - General physical health deterioration [Unknown]
  - Rib fracture [Unknown]

NARRATIVE: CASE EVENT DATE: 20200618
